FAERS Safety Report 9993325 (Version 1)
Quarter: 2014Q1

REPORT INFORMATION
  Report Type: Spontaneous
  Country: US (occurrence: US)
  Receive Date: 20140310
  Receipt Date: 20140310
  Transmission Date: 20141002
  Serious: Yes (Other)
  Sender: FDA-Public Use
  Company Number: US-PFIZER INC-2014068146

PATIENT
  Sex: 0

DRUGS (4)
  1. CELEBREX [Suspect]
     Dosage: UNK
  2. DICLOFENAC EPOLAMINE [Suspect]
     Dosage: UNK
  3. WARFARIN [Suspect]
     Dosage: UNK
  4. TORADOL [Suspect]
     Dosage: UNK

REACTIONS (1)
  - Gastrointestinal haemorrhage [Recovered/Resolved]
